FAERS Safety Report 11347305 (Version 3)
Quarter: 2015Q3

REPORT INFORMATION
  Report Type: Spontaneous
  Country: US (occurrence: US)
  Receive Date: 20150806
  Receipt Date: 20150818
  Transmission Date: 20151125
  Serious: Yes (Other)
  Sender: FDA-Public Use
  Company Number: US-TEVA-584311ACC

PATIENT
  Age: 29 Year
  Sex: Female
  Weight: 78.09 kg

DRUGS (1)
  1. PARAGARD T 380A [Suspect]
     Active Substance: COPPER
     Indication: CONTRACEPTION
     Route: 015
     Dates: start: 201005

REACTIONS (3)
  - Medical device complication [Unknown]
  - Uterine perforation [Unknown]
  - Embedded device [Unknown]
